FAERS Safety Report 24067741 (Version 1)
Quarter: 2024Q3

REPORT INFORMATION
  Report Type: Spontaneous
  Country: US (occurrence: None)
  Receive Date: 20240710
  Receipt Date: 20240710
  Transmission Date: 20241017
  Serious: No
  Sender: ASTRAZENECA
  Company Number: 2024A147223

PATIENT
  Sex: Male

DRUGS (2)
  1. FARXIGA [Suspect]
     Active Substance: DAPAGLIFLOZIN PROPANEDIOL
     Route: 048
     Dates: end: 202406
  2. XARELTO [Suspect]
     Active Substance: RIVAROXABAN

REACTIONS (7)
  - Fungal skin infection [Unknown]
  - Rhinitis [Not Recovered/Not Resolved]
  - Rhinalgia [Not Recovered/Not Resolved]
  - Pain [Unknown]
  - Rash pustular [Recovering/Resolving]
  - Back pain [Not Recovered/Not Resolved]
  - Back pain [Unknown]
